FAERS Safety Report 16384094 (Version 1)
Quarter: 2019Q2

REPORT INFORMATION
  Report Type: Spontaneous
  Country: FR (occurrence: FR)
  Receive Date: 20190603
  Receipt Date: 20190603
  Transmission Date: 20190711
  Serious: Yes (Death, Other)
  Sender: FDA-Public Use
  Company Number: FR-AXELLIA-002499

PATIENT
  Age: 80 Year
  Sex: Male
  Weight: 76 kg

DRUGS (11)
  1. KARDEGIC [Concomitant]
     Active Substance: ASPIRIN DL-LYSINE
     Dosage: STRENGTH:75 MG, IN SACHET-DOSE
  2. RAMIPRIL. [Concomitant]
     Active Substance: RAMIPRIL
  3. LOVENOX [Concomitant]
     Active Substance: ENOXAPARIN SODIUM
  4. TAHOR [Concomitant]
     Active Substance: ATORVASTATIN CALCIUM
     Dosage: STRENGTH:80 MG
  5. VANCOMYCIN [Suspect]
     Active Substance: VANCOMYCIN
     Indication: OSTEOMYELITIS
     Route: 042
     Dates: start: 20190328, end: 20190402
  6. JANUVIA [Concomitant]
     Active Substance: SITAGLIPTIN PHOSPHATE
     Dosage: STRENGTH:100 MG
  7. CEFEPIME [Suspect]
     Active Substance: CEFEPIME HYDROCHLORIDE
     Indication: OSTEOMYELITIS
     Route: 042
     Dates: start: 20190328, end: 20190405
  8. OMEPRAZOLE. [Concomitant]
     Active Substance: OMEPRAZOLE
  9. FUROSEMIDE. [Concomitant]
     Active Substance: FUROSEMIDE
  10. BISOCE [Concomitant]
     Active Substance: BISOPROLOL
     Dosage: STRENGTH: 5 MG
  11. GLUCOPHAGE [Concomitant]
     Active Substance: METFORMIN HYDROCHLORIDE
     Dosage: STRENGTH:1000 MG

REACTIONS (2)
  - Acute kidney injury [Fatal]
  - Confusional state [Not Recovered/Not Resolved]

NARRATIVE: CASE EVENT DATE: 20190402
